FAERS Safety Report 5495498-4 (Version None)
Quarter: 2007Q4

REPORT INFORMATION
  Report Type: 
  Country: None (occurrence: None)
  Receive Date: 20071023
  Receipt Date: 20071009
  Transmission Date: 20080405
  Serious: Yes (Other)
  Sender: FDA-Public Use
  Company Number: CERZ-11922

PATIENT
  Sex: Female

DRUGS (1)
  1. CEREZYME [Suspect]
     Indication: GAUCHER'S DISEASE
     Dosage: 800 UNITS QWK IV
     Route: 042

REACTIONS (7)
  - DRUG EXPOSURE DURING PREGNANCY [None]
  - HEPATIC INFARCTION [None]
  - INTRA-UTERINE DEATH [None]
  - OSTEONECROSIS [None]
  - PLACENTAL INSUFFICIENCY [None]
  - POSTPARTUM HAEMORRHAGE [None]
  - PREGNANCY [None]
